FAERS Safety Report 11891272 (Version 1)
Quarter: 2016Q1

REPORT INFORMATION
  Report Type: Spontaneous
  Country: US (occurrence: None)
  Receive Date: 20160105
  Receipt Date: 20160105
  Transmission Date: 20160526
  Serious: No
  Sender: FDA-Public Use
  Company Number: None

PATIENT
  Age: 79 Year
  Sex: Female
  Weight: 61.2 kg

DRUGS (1)
  1. NEOSTIGMINE [Suspect]
     Active Substance: NEOSTIGMINE
     Indication: NEUROMUSCULAR BLOCKADE REVERSAL
     Dosage: WEIGHT BASED DOSE PRN ANESTHESIA INTRAVENOUS
     Route: 042
     Dates: start: 20151229, end: 20151229

REACTIONS (3)
  - Post procedural complication [None]
  - Hypopnoea [None]
  - Asthenia [None]

NARRATIVE: CASE EVENT DATE: 20151229
